FAERS Safety Report 17176297 (Version 1)
Quarter: 2019Q4

REPORT INFORMATION
  Report Type: Spontaneous
  Country: MA (occurrence: MA)
  Receive Date: 20191219
  Receipt Date: 20191219
  Transmission Date: 20200122
  Serious: Yes (Other)
  Sender: FDA-Public Use
  Company Number: MA-SUN PHARMACEUTICAL INDUSTRIES LTD-2019RR-231275

PATIENT
  Age: 58 Year
  Sex: Female

DRUGS (4)
  1. METHYLPREDNISOLONE. [Suspect]
     Active Substance: METHYLPREDNISOLONE
     Indication: PEMPHIGUS
     Dosage: UNK
     Route: 040
  2. AMLODIPINE [Suspect]
     Active Substance: AMLODIPINE BESYLATE
     Indication: HYPERTENSION
     Dosage: UNK
     Route: 065
  3. PREDNISONE. [Suspect]
     Active Substance: PREDNISONE
     Indication: PEMPHIGUS
     Dosage: 1 MILLIGRAM/KILOGRAM, DAILY
     Route: 065
  4. AZATHIOPRINE. [Suspect]
     Active Substance: AZATHIOPRINE
     Indication: PEMPHIGUS
     Dosage: 150 MILLIGRAM, DAILY
     Route: 065

REACTIONS (2)
  - Pemphigus [Recovered/Resolved]
  - Drug ineffective [Unknown]
